FAERS Safety Report 17253935 (Version 1)
Quarter: 2020Q1

REPORT INFORMATION
  Report Type: Spontaneous
  Country: ES (occurrence: ES)
  Receive Date: 20200109
  Receipt Date: 20200109
  Transmission Date: 20200409
  Serious: Yes (Life-Threatening)
  Sender: FDA-Public Use
  Company Number: ES-MYLANLABS-2020M1002604

PATIENT
  Age: 59 Year
  Sex: Male

DRUGS (2)
  1. FEBUXOSTAT. [Suspect]
     Active Substance: FEBUXOSTAT
     Indication: HYPERURICAEMIA
     Dosage: UNK UNK, QD
     Route: 048
     Dates: start: 20190929, end: 20190930
  2. FLUTICASONA                        /00972201/ [Concomitant]
     Indication: RHINITIS
     Dosage: 55 MICROGRAM, QD
     Route: 045
     Dates: start: 20190123

REACTIONS (1)
  - Acute myocardial infarction [Recovering/Resolving]

NARRATIVE: CASE EVENT DATE: 20190929
